FAERS Safety Report 9818989 (Version 1)
Quarter: 2014Q1

REPORT INFORMATION
  Report Type: Spontaneous
  Country: US (occurrence: None)
  Receive Date: 20140114
  Receipt Date: 20140114
  Transmission Date: 20141002
  Serious: Yes (Life-Threatening, Hospitalization)
  Sender: FDA-Public Use
  Company Number: None

PATIENT
  Age: 84 Year
  Sex: Female

DRUGS (9)
  1. LISINOPRIL [Suspect]
     Route: 048
  2. LISINOPRIL/HCTZ [Suspect]
     Route: 048
  3. MAGNESIUM OXIDE [Concomitant]
  4. LOMOTIL [Concomitant]
  5. GLEEVEC [Concomitant]
  6. ASPIRIN [Concomitant]
  7. HYDROCODONE [Concomitant]
  8. LORAZEPAM [Concomitant]
  9. EFFER-K [Concomitant]

REACTIONS (1)
  - Angioedema [None]
